FAERS Safety Report 4742746-1 (Version None)
Quarter: 2005Q3

REPORT INFORMATION
  Report Type: 
  Country: None (occurrence: None)
  Receive Date: 20050810
  Receipt Date: 20050810
  Transmission Date: 20060218
  Serious: Yes (Hospitalization)
  Sender: FDA-Public Use
  Company Number: None

PATIENT
  Sex: Male
  Weight: 79.3795 kg

DRUGS (13)
  1. CYMBALTA [Suspect]
     Indication: NEUROPATHY PERIPHERAL
     Dosage: 60 MG QD PO
     Route: 048
     Dates: start: 20050419, end: 20050731
  2. TEGRETOL [Concomitant]
  3. PLAVIX [Concomitant]
  4. ASPIRIN [Concomitant]
  5. ACCUPRIL [Concomitant]
  6. PRILOSEC [Concomitant]
  7. PROSCAR [Concomitant]
  8. ALLEGRA [Concomitant]
  9. VERAPAMIL [Concomitant]
  10. RHINOCORT [Concomitant]
  11. CROMOLYN SODIUM [Concomitant]
  12. ADVAIR DISKUS 100/50 [Concomitant]
  13. METERS [Concomitant]

REACTIONS (3)
  - CHEST PAIN [None]
  - CHRONIC OBSTRUCTIVE PULMONARY DISEASE [None]
  - DYSPNOEA [None]
